FAERS Safety Report 17156791 (Version 1)
Quarter: 2019Q4

REPORT INFORMATION
  Report Type: Spontaneous
  Country: IT (occurrence: IT)
  Receive Date: 20191216
  Receipt Date: 20191216
  Transmission Date: 20200122
  Serious: Yes (Hospitalization)
  Sender: FDA-Public Use
  Company Number: IT-TEVA-2019-IT-1151571

PATIENT
  Age: 84 Year
  Sex: Female
  Weight: 40 kg

DRUGS (3)
  1. VORICONAZOLE. [Suspect]
     Active Substance: VORICONAZOLE
     Indication: BRONCHOPULMONARY ASPERGILLOSIS
     Dosage: 400 MG 1 DAYS
     Route: 048
     Dates: start: 20190923, end: 20190925
  2. APIXABAN [Concomitant]
     Active Substance: APIXABAN
     Indication: ATRIAL FIBRILLATION
     Dosage: 5 MG 1 DAYS
     Route: 048
     Dates: start: 20180615
  3. ALPRAZOLAM. [Concomitant]
     Active Substance: ALPRAZOLAM
     Dosage: 6 GTT 1 DAYS
     Route: 048

REACTIONS (4)
  - Hallucination, visual [Recovered/Resolved]
  - Scintillating scotoma [Recovered/Resolved]
  - Vision blurred [Recovered/Resolved]
  - Halo vision [Recovered/Resolved]

NARRATIVE: CASE EVENT DATE: 20190924
